FAERS Safety Report 10184088 (Version 1)
Quarter: 2014Q2

REPORT INFORMATION
  Report Type: Spontaneous
  Country: US (occurrence: US)
  Receive Date: 20140520
  Receipt Date: 20140520
  Transmission Date: 20141212
  Serious: No
  Sender: FDA-Public Use
  Company Number: US-ASTRAZENECA-2013SE72447

PATIENT
  Age: 59 Year
  Sex: Male
  Weight: 78.5 kg

DRUGS (5)
  1. ENTOCORT EC [Suspect]
     Indication: GASTROINTESTINAL INFECTION
     Route: 048
     Dates: start: 2010, end: 2013
  2. PRAVASTATIN [Concomitant]
     Indication: BLOOD CHOLESTEROL INCREASED
     Dosage: UNKNOWN DAILY
     Dates: start: 2012
  3. DIAZAPAM [Concomitant]
     Indication: NERVOUS SYSTEM DISORDER
  4. PREVACID [Concomitant]
     Indication: GASTROOESOPHAGEAL REFLUX DISEASE
     Dosage: UNKNOWN DAILY
     Dates: start: 2003
  5. POTTASSIUM [Concomitant]
     Indication: BLOOD POTASSIUM DECREASED
     Dosage: NR NR

REACTIONS (6)
  - Adverse event [Unknown]
  - Blood cholesterol increased [Unknown]
  - Panic attack [Unknown]
  - Dyspepsia [Unknown]
  - Blood potassium decreased [Unknown]
  - Intentional product misuse [Unknown]
